FAERS Safety Report 8363762-7 (Version None)
Quarter: 2012Q1

REPORT INFORMATION
  Report Type: 
  Country: None (occurrence: None)
  Receive Date: 20120323
  Receipt Date: 20111121
  Transmission Date: 20120608
  Serious: Yes (Disabling, Other)
  Sender: FDA-Public Use
  Company Number: 163-21880-11113204

PATIENT
  Age: 87 Year
  Sex: Female

DRUGS (1)
  1. REVLIMID [Suspect]
     Indication: MULTIPLE MYELOMA
     Dosage: 10 MG, TIMES 21 DAYS, PO
     Route: 048
     Dates: start: 20100618

REACTIONS (4)
  - UPPER RESPIRATORY TRACT INFECTION [None]
  - DECREASED APPETITE [None]
  - WEIGHT DECREASED [None]
  - DIARRHOEA HAEMORRHAGIC [None]
